FAERS Safety Report 17410361 (Version 5)
Quarter: 2020Q3

REPORT INFORMATION
  Report Type: Report from Study
  Country: ID (occurrence: ID)
  Receive Date: 20200212
  Receipt Date: 20200925
  Transmission Date: 20201102
  Serious: Yes (Hospitalization, Other)
  Sender: FDA-Public Use
  Company Number: ID-SEATTLE GENETICS-2020SGN00018

PATIENT
  Sex: Female

DRUGS (2)
  1. BRENTUXIMAB VEDOTIN [Suspect]
     Active Substance: BRENTUXIMAB VEDOTIN
     Dosage: 50 MILLIGRAM
     Route: 065
  2. BRENTUXIMAB VEDOTIN [Suspect]
     Active Substance: BRENTUXIMAB VEDOTIN
     Indication: HODGKIN^S DISEASE REFRACTORY
     Dosage: 100 MILLIGRAM
     Route: 065
     Dates: start: 20191230

REACTIONS (7)
  - Haemoglobin decreased [Unknown]
  - Weight decreased [Unknown]
  - Back pain [Unknown]
  - Varicella zoster virus infection [Unknown]
  - Arthralgia [Unknown]
  - Blood potassium decreased [Unknown]
  - Metastases to bone [Unknown]
